FAERS Safety Report 9901306 (Version 2)
Quarter: 2014Q1

REPORT INFORMATION
  Report Type: Spontaneous
  Country: US (occurrence: US)
  Receive Date: 20140217
  Receipt Date: 20140306
  Transmission Date: 20141002
  Serious: Yes (Other)
  Sender: FDA-Public Use
  Company Number: US-RB-062930-14

PATIENT
  Age: 41 Year
  Sex: Female

DRUGS (1)
  1. MUCINEX DM [Suspect]
     Indication: PRODUCT USED FOR UNKNOWN INDICATION
     Dosage: TOOK TOTAL OF 4 DOSES IN NOVEMBER ON AN UNSPECIFIED DATE.
     Route: 048

REACTIONS (3)
  - Disturbance in attention [Recovered/Resolved]
  - Unevaluable event [Recovered/Resolved]
  - Confusional state [Recovered/Resolved]
